FAERS Safety Report 17855879 (Version 2)
Quarter: 2020Q2

REPORT INFORMATION
  Report Type: Spontaneous
  Country: IT (occurrence: IT)
  Receive Date: 20200603
  Receipt Date: 20200608
  Transmission Date: 20200714
  Serious: Yes (Hospitalization, Other)
  Sender: FDA-Public Use
  Company Number: IT-MYLANLABS-2020M1053462

PATIENT
  Age: 56 Year
  Sex: Male
  Weight: 85 kg

DRUGS (4)
  1. BRUFEN 600 MG COMPRESSE RIVESTITE [Suspect]
     Active Substance: IBUPROFEN
     Indication: BACK PAIN
     Dosage: 3 DOSAGE FORM, QOD
     Route: 048
     Dates: start: 20191201, end: 20200402
  2. METFORMINA ALMUS [Concomitant]
     Indication: DIABETES MELLITUS
     Dosage: 3 DOSAGE FORM
     Route: 048
  3. LIXIANA [Concomitant]
     Active Substance: EDOXABAN TOSYLATE
     Indication: THROMBOSIS PROPHYLAXIS
     Route: 048
     Dates: start: 20200304, end: 20200402
  4. OKI [Suspect]
     Active Substance: KETOPROFEN LYSINE
     Indication: BACK PAIN
     Dosage: 3 DOSAGE FORM, QOD
     Route: 048
     Dates: start: 20191201, end: 20200402

REACTIONS (5)
  - Gastric haemorrhage [Recovered/Resolved]
  - Anaemia [Recovered/Resolved]
  - Drug abuse [Unknown]
  - Melaena [Recovered/Resolved]
  - Intentional product misuse [Unknown]

NARRATIVE: CASE EVENT DATE: 20200402
